FAERS Safety Report 8244981-7 (Version None)
Quarter: 2012Q1

REPORT INFORMATION
  Report Type: 
  Country: None (occurrence: None)
  Receive Date: 20120329
  Receipt Date: 20111130
  Transmission Date: 20120608
  Serious: No
  Sender: FDA-Public Use
  Company Number: US-MYLANLABS-2011S1023063

PATIENT
  Age: 49 Year
  Sex: Male
  Weight: 113.4 kg

DRUGS (13)
  1. VITAMIN D [Concomitant]
  2. CALCIUM CARBONATE [Concomitant]
  3. FENTANYL-100 [Suspect]
     Dosage: Q 72 HOURS
     Route: 062
     Dates: start: 20110302
  4. LYRICA [Concomitant]
     Indication: NEURALGIA
     Route: 048
  5. BETHANECHOL [Concomitant]
     Route: 048
  6. FENTANYL-100 [Suspect]
     Indication: THORACIC OUTLET SYNDROME
     Dosage: Q 72 HOURS
     Route: 062
     Dates: start: 20110302
  7. PSYLLIUM HUSK /00029101/ [Concomitant]
  8. ASPIRIN [Concomitant]
  9. FENTANYL-100 [Suspect]
     Indication: NEURALGIA
     Dosage: Q 72 HOURS
     Route: 062
     Dates: start: 20110302
  10. FENTANYL-100 [Suspect]
     Dosage: Q 72 HOURS
     Route: 062
     Dates: start: 20110302
  11. PERCOCET [Concomitant]
     Indication: BREAKTHROUGH PAIN
     Dosage: 10MG/325MG
     Route: 048
  12. NEXIUM [Concomitant]
     Indication: GASTROOESOPHAGEAL REFLUX DISEASE
     Route: 048
  13. ZANAFLEX [Concomitant]
     Indication: MUSCLE RELAXANT THERAPY
     Route: 048

REACTIONS (1)
  - FALSE NEGATIVE INVESTIGATION RESULT [None]
